FAERS Safety Report 4944395-9 (Version None)
Quarter: 2006Q1

REPORT INFORMATION
  Report Type: 
  Country: None (occurrence: None)
  Receive Date: 20060315
  Receipt Date: 20051025
  Transmission Date: 20060701
  Serious: Yes (Hospitalization, Other)
  Sender: FDA-Public Use
  Company Number: PR-MERCK-0510USA09262

PATIENT
  Age: 70 Year
  Sex: Female

DRUGS (1)
  1. VIOXX [Suspect]
     Route: 048
     Dates: start: 20000101, end: 20010101

REACTIONS (8)
  - ANAEMIA [None]
  - BACTERAEMIA [None]
  - CATARACT [None]
  - CEREBROVASCULAR ACCIDENT [None]
  - DIABETES MELLITUS [None]
  - HYPERTENSIVE CRISIS [None]
  - ISCHAEMIC STROKE [None]
  - RENAL FAILURE CHRONIC [None]
